FAERS Safety Report 24235971 (Version 1)
Quarter: 2024Q3

REPORT INFORMATION
  Report Type: Spontaneous
  Country: TR (occurrence: TR)
  Receive Date: 20240822
  Receipt Date: 20240822
  Transmission Date: 20241016
  Serious: Yes (Hospitalization, Other)
  Sender: NOVO NORDISK
  Company Number: TR-NOVOPROD-1270575

PATIENT
  Sex: Male

DRUGS (1)
  1. INSULIN ASPART\INSULIN DEGLUDEC [Suspect]
     Active Substance: INSULIN ASPART\INSULIN DEGLUDEC
     Indication: Product used for unknown indication
     Dosage: 40 IU, BID

REACTIONS (3)
  - Fall [Unknown]
  - Foot fracture [Unknown]
  - Visual impairment [Unknown]
